FAERS Safety Report 8386818-1 (Version None)
Quarter: 2012Q2

REPORT INFORMATION
  Report Type: 
  Country: None (occurrence: None)
  Receive Date: 20120523
  Receipt Date: 20120511
  Transmission Date: 20120825
  Serious: Yes (Hospitalization, Other)
  Sender: FDA-Public Use
  Company Number: AUR-APL-2010-00333

PATIENT
  Age: 73 Year
  Sex: Female

DRUGS (11)
  1. DIGOXIN [Concomitant]
  2. LORMETAZEPAM [Concomitant]
  3. METFFORMIN HYDROCHLORIDE [Suspect]
     Indication: TYPE 2 DIABETES MELLITUS
     Dosage: 2250 MG (850 MG, 3 IN 1 D),
  4. TORSEMIDE [Concomitant]
  5. INSULIN GLARGINE [Concomitant]
  6. ACENOCOUMAROL [Concomitant]
  7. TERBUTALINE [Concomitant]
  8. TIOTROPIUM BROMIDE [Concomitant]
  9. ACENOCOUMAROL (ACENOCOUMAROL) [Suspect]
     Indication: PRODUCT USED FOR UNKNOWN INDICATION
  10. BISOPROLOL FUMARATE [Concomitant]
  11. ESCITALOPRAM [Concomitant]

REACTIONS (29)
  - PROTHROMBIN TIME PROLONGED [None]
  - POLYDIPSIA [None]
  - COAGULOPATHY [None]
  - LACTIC ACIDOSIS [None]
  - CARDIAC FAILURE [None]
  - POLYURIA [None]
  - ACTIVATED PARTIAL THROMBOPLASTIN TIME PROLONGED [None]
  - HYPERGLYCAEMIA [None]
  - THROMBOCYTOPENIA [None]
  - DECREASED APPETITE [None]
  - INTERNATIONAL NORMALISED RATIO INCREASED [None]
  - HAEMODIALYSIS [None]
  - LEUKOCYTOSIS [None]
  - RENAL FAILURE [None]
  - GENERAL PHYSICAL HEALTH DETERIORATION [None]
  - PANCREATITIS [None]
  - DYSPNOEA [None]
  - BLOOD SODIUM DECREASED [None]
  - HEPATOTOXICITY [None]
  - ABDOMINAL PAIN UPPER [None]
  - VOMITING [None]
  - ANAEMIA [None]
  - HEART RATE DECREASED [None]
  - HYPOGLYCAEMIA [None]
  - HEPATIC FAILURE [None]
  - NEUTROPHILIA [None]
  - ASTHENIA [None]
  - DEHYDRATION [None]
  - EFFUSION [None]
